FAERS Safety Report 5523092-5 (Version None)
Quarter: 2007Q4

REPORT INFORMATION
  Report Type: 
  Country: None (occurrence: None)
  Receive Date: 20071116
  Receipt Date: 20071102
  Transmission Date: 20080405
  Serious: Yes (Death)
  Sender: FDA-Public Use
  Company Number: 2007S1010920

PATIENT
  Age: 45 Year
  Sex: Female

DRUGS (4)
  1. LOVAN (FLUOXETINE HYDROCHLORIDE) (20 MG) [Suspect]
     Indication: ANXIETY
     Dosage: 80 MG;DAILY
     Dates: start: 20020101, end: 20060101
  2. LOVAN (FLUOXETINE HYDROCHLORIDE) (20 MG) [Suspect]
     Indication: DEPRESSION
     Dosage: 80 MG;DAILY
     Dates: start: 20020101, end: 20060101
  3. TEMAZEPAM [Concomitant]
  4. DIAZEPAM [Concomitant]

REACTIONS (1)
  - DRUG TOXICITY [None]
